FAERS Safety Report 6998268-0 (Version None)
Quarter: 2010Q3

REPORT INFORMATION
  Report Type: 
  Country: None (occurrence: None)
  Receive Date: 20100920
  Receipt Date: 20100510
  Transmission Date: 20110219
  Serious: Yes (Other)
  Sender: FDA-Public Use
  Company Number: US-ASTRAZENECA-2010SE17513

PATIENT
  Age: 4412 Day
  Sex: Male
  Weight: 34 kg

DRUGS (8)
  1. SEROQUEL [Suspect]
     Indication: DEPRESSION
     Route: 048
  2. SEROQUEL [Suspect]
     Indication: BIPOLAR DISORDER
     Route: 048
  3. ADDERALL XR 10 [Concomitant]
     Indication: DEPRESSION
     Route: 048
  4. ADDERALL XR 10 [Concomitant]
     Indication: BIPOLAR DISORDER
     Route: 048
  5. CLONIDINE [Concomitant]
     Indication: DEPRESSION
     Route: 048
  6. CLONIDINE [Concomitant]
     Indication: BIPOLAR DISORDER
     Route: 048
  7. DIVALPROEX SODIUM [Concomitant]
     Indication: DEPRESSION
     Route: 048
  8. DIVALPROEX SODIUM [Concomitant]
     Indication: BIPOLAR DISORDER
     Route: 048

REACTIONS (1)
  - HYPOTHYROIDISM [None]
